FAERS Safety Report 4585573-0 (Version None)
Quarter: 2005Q1

REPORT INFORMATION
  Report Type: 
  Country: None (occurrence: None)
  Receive Date: 20050214
  Receipt Date: 20041007
  Transmission Date: 20050727
  Serious: Yes (Death, Hospitalization)
  Sender: FDA-Public Use
  Company Number: 05-083

PATIENT
  Age: 54 Year
  Sex: Female

DRUGS (14)
  1. DEXAMETHASONE [Suspect]
     Indication: MULTIPLE MYELOMA
     Dosage: 40 MG/DAY
     Dates: start: 20011012, end: 20011015
  2. GENASENSE [Concomitant]
  3. MULTI-VITAMINS [Concomitant]
  4. LISINOPRIL AND HYDROCHLOROTHIAZIDE [Concomitant]
  5. VERAPAMIL [Concomitant]
  6. LEVOTHYROXINE [Concomitant]
  7. POTASSIUM CHLORIDE [Concomitant]
  8. NIZATIDINE [Concomitant]
  9. EPOETIN ALFA [Concomitant]
  10. CALCIUM CARBONATE [Concomitant]
  11. PAMIDRONATE DISODIUM [Concomitant]
  12. HEPARIN [Concomitant]
  13. COTRIM [Concomitant]
  14. ROFEXIB [Concomitant]

REACTIONS (3)
  - DIFFICULTY IN WALKING [None]
  - RENAL FAILURE ACUTE [None]
  - RESPIRATORY ARREST [None]
